FAERS Safety Report 14780411 (Version 4)
Quarter: 2018Q2

REPORT INFORMATION
  Report Type: Report from Study
  Country: JP (occurrence: JP)
  Receive Date: 20180419
  Receipt Date: 20180615
  Transmission Date: 20180711
  Serious: Yes (Death, Hospitalization)
  Sender: FDA-Public Use
  Company Number: JP-JT-EVA201602043KERYXP-002

PATIENT
  Age: 74 Year
  Sex: Male
  Weight: 56 kg

DRUGS (34)
  1. AMLODIPINE [Concomitant]
     Active Substance: AMLODIPINE BESYLATE
     Dosage: 5 MG, QD
     Route: 048
     Dates: end: 20170206
  2. ARTIST [Concomitant]
     Active Substance: CARVEDILOL
     Dosage: 10 MG, QD
     Route: 048
  3. RIONA [Suspect]
     Active Substance: FERRIC CITRATE ANHYDROUS
     Indication: HYPERPHOSPHATAEMIA
     Dosage: 750 MG, QD
     Route: 048
     Dates: start: 20150713, end: 20151004
  4. CINACALCET HYDROCHLORIDE. [Concomitant]
     Active Substance: CINACALCET HYDROCHLORIDE
     Indication: HYPERPARATHYROIDISM SECONDARY
     Dosage: 25 MG, QD
     Route: 048
     Dates: start: 20140714, end: 20160417
  5. FOSRENOL [Concomitant]
     Active Substance: LANTHANUM CARBONATE
     Indication: HYPERPHOSPHATAEMIA
     Dosage: 750 MG, QD
     Route: 048
     Dates: start: 20141229, end: 20170207
  6. CELECOX [Concomitant]
     Active Substance: CELECOXIB
     Dosage: 100 MG, QD
     Route: 048
     Dates: start: 20170112
  7. NESP [Concomitant]
     Active Substance: DARBEPOETIN ALFA
     Indication: NEPHROGENIC ANAEMIA
     Dosage: 15 MICRO-G, UNK
     Route: 042
  8. BROTIZOLAM [Concomitant]
     Active Substance: BROTIZOLAM
     Dosage: 0.25 MG, QD
     Route: 048
  9. EBRANTIL                           /00631801/ [Concomitant]
     Active Substance: URAPIDIL
     Dosage: 30 MG, QD
     Route: 048
  10. LYRICA [Concomitant]
     Active Substance: PREGABALIN
     Dosage: 25 MG, QD
     Route: 048
     Dates: start: 20170112, end: 20170119
  11. NIKORANMART [Concomitant]
     Active Substance: NICORANDIL
     Dosage: 15 MG, QD
     Route: 048
     Dates: end: 20160612
  12. DEPAS [Concomitant]
     Active Substance: ETIZOLAM
     Dosage: UNK
     Route: 048
     Dates: end: 20170206
  13. AVOLVE [Concomitant]
     Active Substance: DUTASTERIDE
     Dosage: 0.5 MG, QD
     Route: 048
     Dates: end: 20160219
  14. LYRICA [Concomitant]
     Active Substance: PREGABALIN
     Dosage: 50 MG, QD
     Route: 048
     Dates: start: 20170120, end: 20170514
  15. ZENASPIRIN [Concomitant]
     Dosage: 100 MG, QD
     Route: 048
  16. ISOPIT [Concomitant]
     Dosage: 40 MG, QD
     Route: 065
  17. CERNILTON                          /00521401/ [Concomitant]
     Dosage: 4 DF, QD
     Route: 048
  18. RIONA [Suspect]
     Active Substance: FERRIC CITRATE ANHYDROUS
     Dosage: 1500 MG, QD
     Route: 048
     Dates: start: 20151005, end: 20170207
  19. LIMAPROST ALFADEX [Concomitant]
     Active Substance: LIMAPROST
     Dosage: 15 MICRO-G, QD
     Route: 048
     Dates: start: 20170112, end: 20170131
  20. TEPRENONE [Concomitant]
     Active Substance: TEPRENONE
     Indication: PROPHYLAXIS
     Dosage: 50 MG, QD
     Route: 048
     Dates: start: 20170112
  21. HUMALOG MIX [Concomitant]
     Active Substance: INSULIN LISPRO
     Dosage: 40 DF, QD
     Route: 058
     Dates: end: 20170605
  22. YAKUBAN [Concomitant]
     Active Substance: FLURBIPROFEN
     Dosage: 40 MG, QD
     Route: 065
  23. KAYEXALATE [Concomitant]
     Active Substance: SODIUM POLYSTYRENE SULFONATE
     Dosage: 6.54 G, QD
     Route: 048
  24. LANSOPRAZOLE. [Concomitant]
     Active Substance: LANSOPRAZOLE
     Indication: HYPERCHLORHYDRIA
     Dosage: 15 MG, QD
     Route: 048
     Dates: start: 20111010, end: 20170207
  25. NEUROTROPIN                        /06251301/ [Concomitant]
     Active Substance: ORYCTOLAGUS CUNICULUS SKIN
     Dosage: 12 IU, QD
     Route: 048
     Dates: start: 20170112, end: 20170131
  26. NESP [Concomitant]
     Active Substance: DARBEPOETIN ALFA
     Dosage: 10 MICRO-G, UNK
     Route: 042
  27. NESP [Concomitant]
     Active Substance: DARBEPOETIN ALFA
     Dosage: 10 MICRO-G, UNK
     Route: 042
  28. NESP [Concomitant]
     Active Substance: DARBEPOETIN ALFA
     Dosage: 5 MICRO-G, UNK
     Route: 042
  29. FESIN                              /00023550/ [Concomitant]
     Active Substance: IRON SUCROSE
     Indication: MINERAL SUPPLEMENTATION
     Dosage: 40 MG, UNK
     Route: 042
  30. AMIYU                              /02028701/ [Concomitant]
     Indication: DIABETIC NEPHROPATHY
     Dosage: 3 DF, QD
     Route: 048
     Dates: end: 20160612
  31. MYSLEE [Concomitant]
     Active Substance: ZOLPIDEM TARTRATE
     Dosage: 5 MG, QD
     Route: 048
  32. CALCITRIOL. [Concomitant]
     Active Substance: CALCITRIOL
     Indication: HYPERPARATHYROIDISM SECONDARY
     Dosage: 2.5 MICRO-G, QD
     Route: 042
     Dates: start: 20140804
  33. REBAMIPIDE [Concomitant]
     Active Substance: REBAMIPIDE
     Indication: PROPHYLAXIS
     Dosage: 100 MG, QD
     Route: 048
     Dates: start: 20170112
  34. CALONAL [Concomitant]
     Active Substance: ACETAMINOPHEN
     Dosage: 500 MG, QD
     Route: 048
     Dates: start: 20170112

REACTIONS (2)
  - Back pain [Recovering/Resolving]
  - Myocardial ischaemia [Fatal]

NARRATIVE: CASE EVENT DATE: 20170123
